FAERS Safety Report 18435191 (Version 3)
Quarter: 2020Q4

REPORT INFORMATION
  Report Type: Spontaneous
  Country: US (occurrence: US)
  Receive Date: 20201027
  Receipt Date: 20201109
  Transmission Date: 20210114
  Serious: Yes (Other)
  Sender: FDA-Public Use
  Company Number: US-BEH-2020123832

PATIENT
  Sex: Female

DRUGS (1)
  1. PRIVIGEN [Suspect]
     Active Substance: HUMAN IMMUNOGLOBULIN G
     Route: 065

REACTIONS (6)
  - No adverse event [Unknown]
  - Suspected transmission of an infectious agent via product [Unknown]
  - Refusal of treatment by patient [Unknown]
  - Vasculitis [Unknown]
  - Infectious mononucleosis [Unknown]
  - Resuscitation [Unknown]
